FAERS Safety Report 4835280-1 (Version None)
Quarter: 2005Q4

REPORT INFORMATION
  Report Type: 
  Country: None (occurrence: None)
  Receive Date: 20051122
  Receipt Date: 20050830
  Transmission Date: 20060501
  Serious: Yes (Hospitalization, Disabling)
  Sender: FDA-Public Use
  Company Number: US-MERCK-0509USA00133

PATIENT
  Age: 54 Year
  Sex: Female
  Weight: 92 kg

DRUGS (7)
  1. VIOXX [Suspect]
     Indication: COSTOCHONDRITIS
     Route: 048
     Dates: start: 20000510, end: 20010201
  2. VIOXX [Suspect]
     Route: 048
     Dates: start: 20000510, end: 20010201
  3. CELEXA [Concomitant]
     Indication: DEPRESSION
     Route: 065
     Dates: start: 20000129
  4. CLONAZEPAM [Concomitant]
     Indication: ANXIETY
     Route: 065
     Dates: start: 19990731
  5. SYNTHROID [Concomitant]
     Indication: HYPOTHYROIDISM
     Route: 065
  6. PREMARIN [Concomitant]
     Indication: HORMONE REPLACEMENT THERAPY
     Route: 065
     Dates: start: 20000112, end: 20010301
  7. MEDROXYPROGESTERONE ACETATE [Concomitant]
     Indication: HORMONE LEVEL ABNORMAL
     Route: 065

REACTIONS (13)
  - ANGINA PECTORIS [None]
  - ARTERIOSCLEROSIS CORONARY ARTERY [None]
  - BLOOD CHOLESTEROL INCREASED [None]
  - CELLULITIS [None]
  - CHEST PAIN [None]
  - HAEMORRHOIDS [None]
  - HYPERSENSITIVITY [None]
  - HYPERTENSION [None]
  - MYOCARDIAL INFARCTION [None]
  - NASAL CONGESTION [None]
  - OEDEMA [None]
  - ROTATOR CUFF SYNDROME [None]
  - UPPER RESPIRATORY TRACT INFECTION [None]
